FAERS Safety Report 6524338-7 (Version None)
Quarter: 2009Q4

REPORT INFORMATION
  Report Type: 
  Country: None (occurrence: None)
  Receive Date: 20091231
  Receipt Date: 20091214
  Transmission Date: 20100525
  Serious: Yes (Death, Hospitalization)
  Sender: FDA-Public Use
  Company Number: US-GENENTECH-262153

PATIENT
  Sex: Female
  Weight: 46.712 kg

DRUGS (34)
  1. RITUXIMAB [Suspect]
     Indication: RHEUMATOID ARTHRITIS
     Dosage: 1000 MG, DAYS 1+15
     Route: 042
     Dates: start: 20030701, end: 20061102
  2. RITUXIMAB [Suspect]
     Dosage: 1000 MG, DAYS 1+15
     Dates: start: 20040301
  3. RITUXIMAB [Suspect]
     Dosage: 1000 MG, DAYS 1+15
     Dates: start: 20041201
  4. RITUXIMAB [Suspect]
     Dosage: 1000 MG, DAYS 1+15
     Dates: start: 20061101
  5. METHYLPREDNISOLONE [Suspect]
     Indication: RHEUMATOID ARTHRITIS
     Dosage: 100 MG, UNK
     Route: 042
     Dates: start: 20030701
  6. METHYLPREDNISOLONE [Suspect]
     Indication: PREMEDICATION
     Dosage: 100 MG, DAYS 1+15
     Route: 042
     Dates: start: 20040316, end: 20061111
  7. PREDNISONE [Suspect]
     Indication: RHEUMATOID ARTHRITIS
     Dosage: 60 MG, UNK
     Route: 048
     Dates: start: 20030701
  8. PREDNISONE [Suspect]
     Indication: PREMEDICATION
     Dosage: UNK, DAYS 2-14
     Route: 048
  9. CARBOPLATIN [Suspect]
     Indication: TONSIL CANCER
     Dosage: UNK, UNK
     Dates: start: 20070807, end: 20070921
  10. ERBITUX [Suspect]
     Indication: TONSIL CANCER
     Dosage: UNK
     Dates: start: 20070807
  11. METHOTREXATE [Concomitant]
     Indication: RHEUMATOID ARTHRITIS
     Dosage: 20 MG, UNK
     Dates: start: 20050221
  12. FOLIC ACID [Concomitant]
     Indication: RHEUMATOID ARTHRITIS
  13. DARVOCET [Concomitant]
     Indication: RHEUMATOID ARTHRITIS
  14. DECADRON [Concomitant]
     Indication: RHEUMATOID ARTHRITIS
     Dates: start: 20070801
  15. CLINDAMYCIN [Concomitant]
     Indication: DRUG USE FOR UNKNOWN INDICATION
  16. INVANZ [Concomitant]
     Indication: DRUG USE FOR UNKNOWN INDICATION
  17. LOTRISONE [Concomitant]
     Indication: DRUG USE FOR UNKNOWN INDICATION
  18. LOVENOX [Concomitant]
     Indication: DRUG USE FOR UNKNOWN INDICATION
  19. RANITIDINE [Concomitant]
     Indication: DRUG USE FOR UNKNOWN INDICATION
  20. REGLAN [Concomitant]
     Indication: DRUG USE FOR UNKNOWN INDICATION
  21. DOXYCYCLINE [Concomitant]
     Indication: DRUG USE FOR UNKNOWN INDICATION
     Dates: start: 20050322
  22. ACYCLOVIR [Concomitant]
     Indication: DRUG USE FOR UNKNOWN INDICATION
  23. PROVIGIL [Concomitant]
     Indication: DRUG USE FOR UNKNOWN INDICATION
  24. CYMBALTA [Concomitant]
     Indication: DRUG USE FOR UNKNOWN INDICATION
  25. ESTROGEN [Concomitant]
     Indication: DRUG USE FOR UNKNOWN INDICATION
     Dosage: UNK
     Dates: start: 19890101
  26. NEXIUM [Concomitant]
     Indication: DRUG USE FOR UNKNOWN INDICATION
  27. LEVOTHYROXINE SODIUM [Concomitant]
     Indication: DRUG USE FOR UNKNOWN INDICATION
     Dosage: UNK
     Dates: start: 19950101
  28. FLUCONAZOLE [Concomitant]
     Indication: DRUG USE FOR UNKNOWN INDICATION
  29. LODINE [Concomitant]
     Indication: DRUG USE FOR UNKNOWN INDICATION
  30. OXYCONTIN [Concomitant]
     Indication: DRUG USE FOR UNKNOWN INDICATION
     Dosage: UNK
     Dates: start: 20070901
  31. DIFLUCAN [Concomitant]
     Indication: DRUG USE FOR UNKNOWN INDICATION
     Dates: start: 20070201
  32. VIGAMOX [Concomitant]
     Indication: DRUG USE FOR UNKNOWN INDICATION
     Dates: start: 20060215
  33. CALCIUM/VITAMIN D [Concomitant]
     Indication: DRUG USE FOR UNKNOWN INDICATION
     Dates: start: 19990101
  34. INFLIXIMAB [Concomitant]
     Indication: DRUG USE FOR UNKNOWN INDICATION
     Dosage: UNK
     Dates: start: 20020301

REACTIONS (1)
  - PROGRESSIVE MULTIFOCAL LEUKOENCEPHALOPATHY [None]
